FAERS Safety Report 7312416-4 (Version None)
Quarter: 2011Q1

REPORT INFORMATION
  Report Type: 
  Country: None (occurrence: None)
  Receive Date: 20110224
  Receipt Date: 20110215
  Transmission Date: 20110831
  Serious: Yes (Hospitalization, Other)
  Sender: FDA-Public Use
  Company Number: US-SANOFI-AVENTIS-A03200701989

PATIENT
  Age: 62 Year
  Sex: Male
  Weight: 113 kg

DRUGS (40)
  1. PLAVIX [Suspect]
     Route: 048
     Dates: start: 20010821, end: 20040129
  2. ARANESP [Concomitant]
     Dosage: DOSE:100 MICROGRAM(S)/MILLILITRE
     Route: 058
  3. VALSARTAN [Concomitant]
     Route: 065
  4. PRILOSEC [Concomitant]
  5. FOLIC ACID [Concomitant]
  6. DIAZEPAM [Concomitant]
  7. DOXAZOSIN [Concomitant]
     Route: 048
  8. AMLODIPINE [Concomitant]
     Route: 065
  9. AMLODIPINE [Concomitant]
  10. AMBIEN [Concomitant]
  11. PLAVIX [Suspect]
     Dosage: UNIT DOSE: 75 MG
     Route: 048
     Dates: start: 19991001
  12. ASPIRIN [Concomitant]
     Route: 048
  13. ASPIRIN [Concomitant]
     Route: 048
  14. MULTI-VITAMINS [Concomitant]
     Route: 048
  15. NIFEREX FORTE [Concomitant]
     Route: 048
  16. HUMALOG [Concomitant]
  17. DEMADEX [Concomitant]
     Route: 048
  18. CLONIDINE [Concomitant]
     Route: 048
  19. ZYRTEC [Concomitant]
  20. PLAVIX [Suspect]
     Indication: CARDIOVASCULAR DISORDER
     Dosage: UNIT DOSE: 75 MG
     Route: 048
     Dates: start: 19991001
  21. COREG [Concomitant]
     Route: 048
  22. TRENTAL [Concomitant]
  23. ANDROGEL [Concomitant]
  24. ALLOPURINOL [Concomitant]
     Route: 048
  25. PHOSLO [Concomitant]
     Route: 048
  26. TOPROL-XL [Concomitant]
  27. IMDUR [Concomitant]
  28. IMDUR [Concomitant]
  29. PENTOXIFYLLINE [Concomitant]
  30. PLAVIX [Suspect]
     Route: 048
     Dates: start: 20010821, end: 20040129
  31. VITAMIN E [Concomitant]
     Dosage: DOSE:400 UNIT(S)
     Route: 048
  32. LIPITOR [Concomitant]
     Route: 048
  33. ALTACE [Concomitant]
  34. CATAPRES /USA/ [Concomitant]
     Route: 048
  35. HUMULIN 70/30 [Concomitant]
     Dosage: 35 UNITS IN THE MORNING AND 35 UNITS IN THE EVENING
  36. NEURONTIN [Concomitant]
     Route: 048
  37. LIPITOR [Concomitant]
     Route: 048
  38. AVAPRO [Concomitant]
     Route: 048
  39. PROZAC [Concomitant]
     Route: 048
  40. COZAAR [Concomitant]
     Route: 048

REACTIONS (9)
  - DIABETIC RETINOPATHY [None]
  - HAEMATOCHEZIA [None]
  - DUODENAL ULCER HAEMORRHAGE [None]
  - NAUSEA [None]
  - ABDOMINAL PAIN [None]
  - ANAEMIA [None]
  - OCCULT BLOOD POSITIVE [None]
  - HAEMATEMESIS [None]
  - DIARRHOEA [None]
